FAERS Safety Report 4955146-6 (Version None)
Quarter: 2006Q1

REPORT INFORMATION
  Report Type: 
  Country: None (occurrence: None)
  Receive Date: 20060328
  Receipt Date: 20060316
  Transmission Date: 20060701
  Serious: Yes (Death)
  Sender: FDA-Public Use
  Company Number: NL-JNJFOC-20060304578

PATIENT
  Age: 31 Year
  Sex: Female
  Weight: 32 kg

DRUGS (5)
  1. REMICADE [Suspect]
     Indication: COLITIS
     Route: 042
  2. PREDNISON [Concomitant]
     Route: 048
  3. IMURAN [Concomitant]
  4. FOSAMAX [Concomitant]
  5. CALCICHEW D3 [Concomitant]
     Dosage: 1000/800

REACTIONS (3)
  - ASPHYXIA [None]
  - ASPIRATION [None]
  - PULMONARY EMBOLISM [None]
